FAERS Safety Report 10487691 (Version 1)
Quarter: 2014Q4

REPORT INFORMATION
  Report Type: Spontaneous
  Country: GB (occurrence: GB)
  Receive Date: 20141001
  Receipt Date: 20141001
  Transmission Date: 20150528
  Serious: Yes (Other)
  Sender: FDA-Public Use
  Company Number: PHFR2014GB006531

PATIENT

DRUGS (1)
  1. RASILEZ [Suspect]
     Active Substance: ALISKIREN
     Dosage: UNK

REACTIONS (3)
  - Wrong technique in drug usage process [Unknown]
  - Cerebrovascular accident [Unknown]
  - Dysphagia [Unknown]
